FAERS Safety Report 10201585 (Version 1)
Quarter: 2014Q2

REPORT INFORMATION
  Report Type: Spontaneous
  Country: US (occurrence: US)
  Receive Date: 20140528
  Receipt Date: 20140528
  Transmission Date: 20141212
  Serious: No
  Sender: FDA-Public Use
  Company Number: US-009507513-1405USA011399

PATIENT
  Sex: Female

DRUGS (1)
  1. DR. SCHOLL^S CLEAR AWAY WART REMOVER PLANTAR FOR FEET [Suspect]
     Indication: SKIN PAPILLOMA
     Dosage: UNK UNK, UNKNOWN
     Route: 003

REACTIONS (2)
  - Skin reaction [Unknown]
  - No therapeutic response [Unknown]
